FAERS Safety Report 8767925 (Version 1)
Quarter: 2012Q4

REPORT INFORMATION
  Report Type: 
  Country: FR (occurrence: FR)
  Receive Date: 20120905
  Receipt Date: 20120905
  Transmission Date: 20130627
  Serious: Yes (Other)
  Sender: FDA-Public Use
  Company Number: PHHY2012FR075398

PATIENT
  Age: 34 Year
  Sex: Male

DRUGS (6)
  1. CICLOSPORIN [Suspect]
     Indication: RENAL TRANSPLANT
  2. BASILIXIMAB [Suspect]
     Indication: RENAL TRANSPLANT
  3. MYCOPHENOLATE MOFETIL [Suspect]
     Indication: IMMUNOSUPPRESSION
     Dosage: 1500 mg/day
  4. MYCOPHENOLATE MOFETIL [Suspect]
     Dosage: 1000 mg/day
     Dates: end: 200805
  5. TACROLIMUS [Suspect]
  6. UNSPECIFIED INGREDIENT [Suspect]
     Indication: IMMUNOSUPPRESSION

REACTIONS (6)
  - Tubulointerstitial nephritis [Recovering/Resolving]
  - Complications of transplanted kidney [Recovering/Resolving]
  - Shock haemorrhagic [Recovering/Resolving]
  - Kidney transplant rejection [Recovering/Resolving]
  - Erythema infectiosum [Recovering/Resolving]
  - Anaemia [Recovering/Resolving]
